FAERS Safety Report 12930566 (Version 1)
Quarter: 2016Q4

REPORT INFORMATION
  Report Type: Spontaneous
  Country: IT (occurrence: IT)
  Receive Date: 20161110
  Receipt Date: 20161110
  Transmission Date: 20170207
  Serious: Yes (Hospitalization)
  Sender: FDA-Public Use
  Company Number: IT-JNJFOC-20161107407

PATIENT
  Age: 76 Year
  Sex: Male

DRUGS (7)
  1. SIMVASTATIN. [Concomitant]
     Active Substance: SIMVASTATIN
     Indication: HYPERCHOLESTEROLAEMIA
     Route: 048
  2. ESKIM [Concomitant]
     Active Substance: OMEGA-3 FATTY ACIDS
     Indication: HYPERTRIGLYCERIDAEMIA
     Route: 048
     Dates: start: 20120905
  3. KANRENOL [Concomitant]
     Active Substance: CANRENOATE POTASSIUM
     Indication: HYPERTENSION
     Route: 048
     Dates: start: 20120905
  4. NITROGLYCERIN. [Concomitant]
     Active Substance: NITROGLYCERIN
     Indication: ANGINA PECTORIS
     Route: 062
     Dates: start: 20120905
  5. CONGESCOR [Concomitant]
     Active Substance: BISOPROLOL
     Indication: ATRIAL FIBRILLATION
     Route: 048
     Dates: start: 20120905
  6. RIVAROXABAN [Suspect]
     Active Substance: RIVAROXABAN
     Indication: ATRIAL FIBRILLATION
     Route: 048
  7. TORASEMIDE [Concomitant]
     Active Substance: TORSEMIDE
     Indication: HYPERTENSION
     Route: 048

REACTIONS (1)
  - Cerebrovascular accident [Recovering/Resolving]

NARRATIVE: CASE EVENT DATE: 20161028
